FAERS Safety Report 11324764 (Version 5)
Quarter: 2016Q2

REPORT INFORMATION
  Report Type: Report from Study
  Country: AU (occurrence: AU)
  Receive Date: 20150730
  Receipt Date: 20160531
  Transmission Date: 20160815
  Serious: Yes (Disabling, Other)
  Sender: FDA-Public Use
  Company Number: AU-REGENERON PHARMACEUTICALS, INC.-2015-11849

PATIENT

DRUGS (1)
  1. EYLEA [Suspect]
     Active Substance: AFLIBERCEPT
     Indication: NEOVASCULAR AGE-RELATED MACULAR DEGENERATION
     Dosage: 2 MG MILLIGRAM(S), 6-7 WEEKS
     Route: 031
     Dates: start: 201302

REACTIONS (7)
  - Eye disorder [Recovered/Resolved]
  - Metastases to liver [Unknown]
  - Eye haemorrhage [Unknown]
  - Nasopharyngitis [Unknown]
  - Injection site discomfort [Recovered/Resolved]
  - Neuropathy peripheral [Unknown]
  - Colon cancer stage IV [Unknown]
